FAERS Safety Report 8052956-6 (Version None)
Quarter: 2012Q1

REPORT INFORMATION
  Report Type: 
  Country: None (occurrence: None)
  Receive Date: 20120118
  Receipt Date: 20120111
  Transmission Date: 20120608
  Serious: Yes (Hospitalization)
  Sender: FDA-Public Use
  Company Number: US-BAYER-2012-004481

PATIENT
  Age: 39 Year
  Sex: Female
  Weight: 104.31 kg

DRUGS (13)
  1. YAZ [Suspect]
     Indication: POLYCYSTIC OVARIES
     Dosage: UNK
     Dates: start: 20061001, end: 20100201
  2. YASMIN [Suspect]
     Indication: POLYCYSTIC OVARIES
     Dosage: UNK
     Dates: start: 20030401, end: 20060901
  3. TRICOR [Concomitant]
     Indication: LIPIDS INCREASED
     Dosage: 145 MG, QD
     Dates: start: 20091201, end: 20100201
  4. ASCORBIC ACID [Concomitant]
     Dosage: UNK UNK, PRN
     Dates: start: 20010101, end: 20110101
  5. AVAPRO [Concomitant]
     Indication: HYPERTENSION
     Dosage: 300 MG, QD
     Dates: start: 20030101, end: 20100501
  6. YASMIN [Suspect]
     Indication: PREMENSTRUAL SYNDROME
  7. YAZ [Suspect]
     Indication: PREMENSTRUAL SYNDROME
  8. METFORMIN HCL [Concomitant]
     Indication: POLYCYSTIC OVARIES
     Dosage: 500 MG, QD
     Dates: start: 19980101
  9. IBUPROFEN [Concomitant]
     Dosage: UNK UNK, PRN
     Dates: start: 20010101, end: 20110101
  10. ASPIRIN [Concomitant]
     Dosage: UNK UNK, PRN
     Dates: start: 20010101, end: 20110101
  11. ACETAMINOPHEN [Concomitant]
     Dosage: UNK UNK, PRN
     Dates: start: 20010101, end: 20110101
  12. TRICOR [Concomitant]
     Indication: BLOOD CHOLESTEROL INCREASED
  13. LEXAPRO [Concomitant]
     Indication: DEPRESSION
     Dosage: 10 MG, QD
     Dates: start: 20080101

REACTIONS (2)
  - INJURY [None]
  - VENOUS THROMBOSIS [None]
